FAERS Safety Report 19092944 (Version 1)
Quarter: 2021Q2

REPORT INFORMATION
  Report Type: Report from Study
  Country: NL (occurrence: NL)
  Receive Date: 20210405
  Receipt Date: 20210405
  Transmission Date: 20210717
  Serious: Yes (Death, Other)
  Sender: FDA-Public Use
  Company Number: NVSC2020NL215691

PATIENT
  Age: 56 Year
  Sex: Female

DRUGS (3)
  1. SANDOSTATINE LAR [Suspect]
     Active Substance: OCTREOTIDE ACETATE
  2. SANDOSTATINE LAR [Suspect]
     Active Substance: OCTREOTIDE ACETATE
  3. SANDOSTATINE LAR [Suspect]
     Active Substance: OCTREOTIDE ACETATE
     Indication: TELANGIECTASIA
     Dosage: 1 DF, Q4W, (1.00 X PER 4 WEEKS)
     Route: 030

REACTIONS (7)
  - Pancreatitis [Unknown]
  - Pain [Unknown]
  - Weight decreased [Unknown]
  - Inflammation [Not Recovered/Not Resolved]
  - Product use in unapproved indication [Unknown]
  - Back pain [Unknown]
  - Neoplasm malignant [Fatal]

NARRATIVE: CASE EVENT DATE: 20200415
